FAERS Safety Report 8073191-1 (Version None)
Quarter: 2012Q1

REPORT INFORMATION
  Report Type: 
  Country: None (occurrence: None)
  Receive Date: 20120126
  Receipt Date: 20120113
  Transmission Date: 20120608
  Serious: Yes (Hospitalization, Other)
  Sender: FDA-Public Use
  Company Number: FR-ELI_LILLY_AND_COMPANY-FR201111006274

PATIENT
  Age: 67 Year
  Sex: Female
  Weight: 61.5 kg

DRUGS (4)
  1. FORTEO [Suspect]
     Indication: OSTEOPOROSIS
     Dosage: 20 UG, QD
     Route: 058
     Dates: start: 20110912, end: 20111021
  2. ASPIRIN [Concomitant]
  3. PRAVASTATIN [Concomitant]
  4. EZETIMIBE [Concomitant]

REACTIONS (2)
  - BLOOD CREATININE INCREASED [None]
  - VIITH NERVE PARALYSIS [None]
